FAERS Safety Report 11238305 (Version 1)
Quarter: 2015Q3

REPORT INFORMATION
  Report Type: Spontaneous
  Country: ES (occurrence: ES)
  Receive Date: 20150704
  Receipt Date: 20150704
  Transmission Date: 20151125
  Serious: Yes (Death, Hospitalization)
  Sender: FDA-Public Use
  Company Number: ES-AUROBINDO-AUR-APL-2015-05566

PATIENT
  Age: 62 Year
  Sex: Female

DRUGS (3)
  1. BOCEPREVIR [Suspect]
     Active Substance: BOCEPREVIR
     Indication: CHRONIC HEPATITIS C
     Route: 065
  2. RIBAVIRIN. [Suspect]
     Active Substance: RIBAVIRIN
     Indication: CHRONIC HEPATITIS C
     Route: 065
  3. TELAPREVIR [Suspect]
     Active Substance: TELAPREVIR
     Indication: CHRONIC HEPATITIS C
     Route: 065

REACTIONS (9)
  - Chills [Unknown]
  - Death [Fatal]
  - Haemoptysis [Unknown]
  - Pancytopenia [Unknown]
  - Pulmonary haemorrhage [Unknown]
  - Aplastic anaemia [Unknown]
  - Cardiac arrest [Unknown]
  - Pneumonia [Unknown]
  - Pyrexia [Unknown]
